FAERS Safety Report 15255571 (Version 1)
Quarter: 2018Q3

REPORT INFORMATION
  Report Type: Spontaneous
  Country: US (occurrence: US)
  Receive Date: 20180808
  Receipt Date: 20180808
  Transmission Date: 20181010
  Serious: No
  Sender: FDA-Public Use
  Company Number: US-TEVA-2018-US-938892

PATIENT
  Age: 74 Year
  Sex: Male

DRUGS (7)
  1. ZOMETA [Concomitant]
     Active Substance: ZOLEDRONIC ACID
     Indication: PATHOLOGICAL FRACTURE
     Route: 065
  2. RITUXIMAB. [Concomitant]
     Active Substance: RITUXIMAB
     Indication: HIGH GRADE B-CELL LYMPHOMA BURKITT-LIKE LYMPHOMA
     Route: 065
  3. PREDNISONE. [Suspect]
     Active Substance: PREDNISONE
     Indication: HYPERCALCAEMIA
     Dosage: LATER INCREASED TO 40MG DAILY
     Route: 065
  4. OXALIPLATIN. [Concomitant]
     Active Substance: OXALIPLATIN
     Indication: HIGH GRADE B-CELL LYMPHOMA BURKITT-LIKE LYMPHOMA
     Route: 065
  5. CALCITONIN [Concomitant]
     Active Substance: CALCITONIN
     Indication: HYPERCALCAEMIA
     Route: 065
  6. PREDNISONE. [Suspect]
     Active Substance: PREDNISONE
     Indication: HYPERCALCAEMIA
     Route: 065
  7. GEMCITABINE [Concomitant]
     Active Substance: GEMCITABINE\GEMCITABINE HYDROCHLORIDE
     Indication: HIGH GRADE B-CELL LYMPHOMA BURKITT-LIKE LYMPHOMA
     Route: 065

REACTIONS (1)
  - Myopathy [Unknown]
